FAERS Safety Report 7602605-3 (Version None)
Quarter: 2011Q3

REPORT INFORMATION
  Report Type: 
  Country: None (occurrence: None)
  Receive Date: 20110712
  Receipt Date: 20110628
  Transmission Date: 20111222
  Serious: Yes (Other)
  Sender: FDA-Public Use
  Company Number: GB-RANBAXY-2011RR-45525

PATIENT
  Age: 26 Year
  Sex: Female

DRUGS (7)
  1. DEXAMETHASONE [Concomitant]
     Indication: PROCEDURAL NAUSEA
     Dosage: 8 MG, UNK
  2. SEVOFLURANE [Concomitant]
     Indication: MAINTENANCE OF ANAESTHESIA
     Route: 055
  3. ONDANSETRON [Suspect]
     Indication: PROCEDURAL NAUSEA
     Dosage: 4 MG, UNK
  4. ONDANSETRON [Suspect]
     Indication: PROCEDURAL VOMITING
  5. DEXAMETHASONE [Concomitant]
     Indication: PROCEDURAL VOMITING
  6. FENTANYL [Concomitant]
     Indication: ANAESTHESIA
     Route: 042
  7. PROPOFOL [Concomitant]
     Indication: ANAESTHESIA
     Route: 042

REACTIONS (1)
  - MIGRAINE [None]
